FAERS Safety Report 16661385 (Version 2)
Quarter: 2019Q3

REPORT INFORMATION
  Report Type: Spontaneous
  Country: US (occurrence: US)
  Receive Date: 20190802
  Receipt Date: 20190909
  Transmission Date: 20191004
  Serious: Yes (Other)
  Sender: FDA-Public Use
  Company Number: US-PFIZER INC-2015380277

PATIENT
  Age: 53 Year
  Sex: Male

DRUGS (1)
  1. VIAGRA [Suspect]
     Active Substance: SILDENAFIL CITRATE
     Indication: SCHIZOPHRENIA
     Dosage: 100 MG, AS NEEDED
     Route: 048

REACTIONS (3)
  - Leukaemia [Unknown]
  - Off label use [Unknown]
  - Product use in unapproved indication [Unknown]
